FAERS Safety Report 17675902 (Version 3)
Quarter: 2020Q2

REPORT INFORMATION
  Report Type: Report from Study
  Country: AU (occurrence: AU)
  Receive Date: 20200416
  Receipt Date: 20200527
  Transmission Date: 20200714
  Serious: Yes (Other)
  Sender: FDA-Public Use
  Company Number: AU-PFIZER INC-2020150846

PATIENT
  Age: 11 Year
  Sex: Male
  Weight: 33 kg

DRUGS (9)
  1. CAMPTOSAR [Suspect]
     Active Substance: IRINOTECAN HYDROCHLORIDE
     Indication: EMBRYONAL RHABDOMYOSARCOMA
     Dosage: 50 MG/M2 (MAX DOSE 100 MG) IV OVER 90 MINUTES ON DAYS 1-5 OF CYCLES 2 AND 4
     Route: 042
     Dates: start: 20200110
  2. VINCRISTINE SULFATE. [Suspect]
     Active Substance: VINCRISTINE SULFATE
     Indication: EMBRYONAL RHABDOMYOSARCOMA
     Dosage: 1.5 MG/M2, (MAX DOSE 2MG) OVER 30-60 MINUTES OR INFUSION VIA MINIBAG ON DAYS 1, 8, AND 15
     Route: 042
     Dates: start: 20200110
  3. VINCRISTINE SULFATE. [Suspect]
     Active Substance: VINCRISTINE SULFATE
     Dosage: 1.7 MG, CYCLIC, CYCLE 5 (WEEK 13)
     Dates: start: 20200407, end: 20200407
  4. CYCLOPHOSPHAMIDE. [Suspect]
     Active Substance: CYCLOPHOSPHAMIDE
     Dosage: 1340 MG, CYCLIC, CYCLE 5 (WEEK 13)
     Dates: start: 20200407, end: 20200407
  5. TEMSIROLIMUS. [Suspect]
     Active Substance: TEMSIROLIMUS
     Dosage: 51 MG, CYCLIC, CYCLE 4, WEEKS 1-3
     Dates: start: 20200331, end: 20200331
  6. CYCLOPHOSPHAMIDE. [Suspect]
     Active Substance: CYCLOPHOSPHAMIDE
     Indication: EMBRYONAL RHABDOMYOSARCOMA
     Dosage: 1200 MG/M2, IV OVER 60 MINUTES ON DAY 1 OF CYCLES 1 AND 3
     Route: 042
     Dates: start: 20200110
  7. DACTINOMYCIN [Suspect]
     Active Substance: DACTINOMYCIN
     Indication: EMBRYONAL RHABDOMYOSARCOMA
     Dosage: 0.05MG/KG (MAX DOSE 2.5MG) IV OVER 1-5 MINUTES ON DAY 1 OF CYCLES 1 AND 3
     Route: 042
     Dates: start: 20200110
  8. TEMSIROLIMUS. [Suspect]
     Active Substance: TEMSIROLIMUS
     Indication: EMBRYONAL RHABDOMYOSARCOMA
     Dosage: 15 MG/M2, IV OVER 30-60 MINUTES ON DAYS 1, 8, AND 15
     Route: 042
     Dates: start: 20200110
  9. CAMPTOSAR [Suspect]
     Active Substance: IRINOTECAN HYDROCHLORIDE
     Dosage: 280 MG, CYCLIC (CYCLE4)
     Dates: start: 20200316, end: 20200320

REACTIONS (1)
  - Alanine aminotransferase increased [Recovering/Resolving]

NARRATIVE: CASE EVENT DATE: 20200331
